FAERS Safety Report 17352735 (Version 2)
Quarter: 2020Q1

REPORT INFORMATION
  Report Type: Spontaneous
  Country: US (occurrence: US)
  Receive Date: 20200131
  Receipt Date: 20200205
  Transmission Date: 20200409
  Serious: No
  Sender: FDA-Public Use
  Company Number: US-DSJP-DSU-2020-101921

PATIENT

DRUGS (3)
  1. OLMESARTAN HCT AN [Concomitant]
     Active Substance: HYDROCHLOROTHIAZIDE\OLMESARTAN MEDOXOMIL
     Indication: HYPERTENSION
     Dosage: UNK MG, QD
     Route: 048
     Dates: start: 2017, end: 2017
  2. BENICAR HCT [Suspect]
     Active Substance: HYDROCHLOROTHIAZIDE\OLMESARTAN MEDOXOMIL
     Indication: HYPERTENSION
     Dosage: UNK MG, QD
     Route: 048
     Dates: start: 2013, end: 2017
  3. BENICAR HCT [Suspect]
     Active Substance: HYDROCHLOROTHIAZIDE\OLMESARTAN MEDOXOMIL
     Dosage: UNK MG, QD
     Route: 048
     Dates: start: 2017

REACTIONS (3)
  - Drug ineffective [Recovered/Resolved]
  - Abdominal discomfort [Recovered/Resolved]
  - Hypertension [Recovered/Resolved]

NARRATIVE: CASE EVENT DATE: 2017
